FAERS Safety Report 8979354 (Version 1)
Quarter: 2012Q4

REPORT INFORMATION
  Report Type: 
  Country: US (occurrence: US)
  Receive Date: 20121221
  Receipt Date: 20121221
  Transmission Date: 20130627
  Serious: Yes (Other)
  Sender: FDA-Public Use
  Company Number: US-ROCHE-1170194

PATIENT
  Age: 80 Year
  Sex: Male
  Weight: 77 kg

DRUGS (1)
  1. NAPROXEN [Suspect]
     Indication: GASTRIC ULCER
     Route: 048

REACTIONS (1)
  - Chronic obstructive pulmonary disease [Recovered/Resolved]
